FAERS Safety Report 18626349 (Version 3)
Quarter: 2021Q1

REPORT INFORMATION
  Report Type: Report from Study
  Country: None (occurrence: US)
  Receive Date: 20201216
  Receipt Date: 20210130
  Transmission Date: 20210419
  Serious: Yes (Other)
  Sender: FDA-Public Use
  Company Number: US-ABBVIE-20K-163-3693224-00

PATIENT
  Age: 63 Year
  Sex: Male
  Weight: 72.64 kg

DRUGS (4)
  1. PRAVACHOL [Concomitant]
     Active Substance: PRAVASTATIN SODIUM
     Indication: BLOOD CHOLESTEROL
  2. LISINOPRIL. [Concomitant]
     Active Substance: LISINOPRIL
     Indication: HYPERTENSION
  3. RINVOQ [Suspect]
     Active Substance: UPADACITINIB
     Indication: RHEUMATOID ARTHRITIS
     Route: 048
     Dates: start: 202003
  4. CLONAZEPAM. [Concomitant]
     Active Substance: CLONAZEPAM
     Indication: PAIN

REACTIONS (3)
  - Neck pain [Recovering/Resolving]
  - Insomnia [Unknown]
  - Intervertebral disc degeneration [Recovering/Resolving]

NARRATIVE: CASE EVENT DATE: 202005
